FAERS Safety Report 4883287-0 (Version None)
Quarter: 2006Q1

REPORT INFORMATION
  Report Type: 
  Country: None (occurrence: None)
  Receive Date: 20060117
  Receipt Date: 20060117
  Transmission Date: 20060701
  Serious: Yes (Hospitalization)
  Sender: FDA-Public Use
  Company Number: None

PATIENT
  Sex: Male
  Weight: 84 kg

DRUGS (1)
  1. ACETAZOLAMIDE [Suspect]
     Dosage: 500MG BID PO
     Route: 048
     Dates: start: 20051104, end: 20051109

REACTIONS (2)
  - CONFUSIONAL STATE [None]
  - DISORIENTATION [None]
